FAERS Safety Report 14400970 (Version 1)
Quarter: 2018Q1

REPORT INFORMATION
  Report Type: Spontaneous
  Country: US (occurrence: US)
  Receive Date: 20180113
  Receipt Date: 20180113
  Transmission Date: 20180509
  Serious: Yes (Hospitalization)
  Sender: FDA-Public Use
  Company Number: None

PATIENT
  Age: 45 Year
  Sex: Female

DRUGS (1)
  1. DABIGATRAN [Suspect]
     Active Substance: DABIGATRAN
     Indication: ATRIAL FIBRILLATION
     Route: 048
     Dates: start: 20170519, end: 20170813

REACTIONS (4)
  - Rectal haemorrhage [None]
  - Gastric haemorrhage [None]
  - Proctalgia [None]
  - Anal fissure [None]

NARRATIVE: CASE EVENT DATE: 20170813
